FAERS Safety Report 16098689 (Version 2)
Quarter: 2021Q4

REPORT INFORMATION
  Report Type: Spontaneous
  Country: CA (occurrence: CA)
  Receive Date: 20190321
  Receipt Date: 20211217
  Transmission Date: 20220304
  Serious: Yes (Death, Other)
  Sender: FDA-Public Use
  Company Number: CA-BAXTER-2019BAX005308

PATIENT
  Age: 31 Year
  Sex: Female

DRUGS (18)
  1. DEXTROSE [Suspect]
     Active Substance: DEXTROSE
     Indication: Product used for unknown indication
     Dosage: DOSAGE FORM: NOT SPECIFIED
     Route: 042
  2. PROPOFOL [Suspect]
     Active Substance: PROPOFOL
     Indication: Status epilepticus
     Route: 042
  3. DIAZEPAM [Suspect]
     Active Substance: DIAZEPAM
     Indication: Status epilepticus
     Dosage: DOSAGE FORM: TABLET
     Route: 065
  4. LORAZEPAM [Suspect]
     Active Substance: LORAZEPAM
     Indication: Status epilepticus
     Dosage: DOSAGE FORM: TABLET
     Route: 065
  5. PAROXETINE [Suspect]
     Active Substance: PAROXETINE
     Indication: Bipolar disorder
     Dosage: DOSAGE FORM: TABLET
     Route: 065
  6. ATIVAN [Suspect]
     Active Substance: LORAZEPAM
     Indication: Bipolar disorder
     Dosage: DOSAGE FORM: NOT SPECIFIED
     Route: 065
  7. MAGNESIUM SULFATE [Suspect]
     Active Substance: MAGNESIUM SULFATE
     Indication: Status epilepticus
     Dosage: DOSAGE FORM: NOT SPECIFIED.
     Route: 065
  8. METOCLOPRAMIDE [Suspect]
     Active Substance: METOCLOPRAMIDE
     Indication: Prophylaxis
     Route: 042
  9. MIDAZOLAM HYDROCHLORIDE [Suspect]
     Active Substance: MIDAZOLAM HYDROCHLORIDE
     Indication: Status epilepticus
     Route: 065
  10. PHENYTOIN [Suspect]
     Active Substance: PHENYTOIN
     Indication: Status epilepticus
     Route: 065
  11. SODIUM CITRATE [Suspect]
     Active Substance: SODIUM CITRATE
     Indication: Prophylaxis
     Dosage: DOSAGE FORM: NOT SPECIFIED
     Route: 048
  12. SUCCINYLCHOLINE CHLORIDE [Suspect]
     Active Substance: SUCCINYLCHOLINE CHLORIDE
     Indication: Endotracheal intubation
     Dosage: DOSAGE FORM: LIQUID INTRAVENOUS
     Route: 065
  13. THIOPENTAL [Suspect]
     Active Substance: THIOPENTAL
     Indication: Status epilepticus
     Dosage: DOSAGE FORM: INTRAVENOUS INFUSION
     Route: 042
  14. THIOPENTAL [Suspect]
     Active Substance: THIOPENTAL
     Indication: Endotracheal intubation
     Dosage: DOSAGE FORM: INTRAVENOUS INFUSION
     Route: 042
  15. THIOPENTAL [Suspect]
     Active Substance: THIOPENTAL
     Dosage: DOSAGE FORM: INTRAVENOUS INFUSION
     Route: 042
  16. THIOPENTAL [Suspect]
     Active Substance: THIOPENTAL
     Dosage: DOSAGE FORM: INTRAVENOUS INFUSION
     Route: 042
  17. THIOPENTAL [Suspect]
     Active Substance: THIOPENTAL
     Dosage: DOSAGE FORM: INTRAVENOUS INFUSION
     Route: 042
  18. THIOPENTAL [Suspect]
     Active Substance: THIOPENTAL
     Route: 042

REACTIONS (18)
  - Blood bicarbonate decreased [Not Recovered/Not Resolved]
  - Blood calcium decreased [Not Recovered/Not Resolved]
  - Blood magnesium decreased [Not Recovered/Not Resolved]
  - Blood pH decreased [Not Recovered/Not Resolved]
  - Diabetes insipidus [Not Recovered/Not Resolved]
  - Drug ineffective [Not Recovered/Not Resolved]
  - Encephalopathy [Not Recovered/Not Resolved]
  - Foetal death [Fatal]
  - Left ventricular dysfunction [Not Recovered/Not Resolved]
  - Loss of consciousness [Not Recovered/Not Resolved]
  - PCO2 increased [Not Recovered/Not Resolved]
  - PO2 increased [Not Recovered/Not Resolved]
  - Renal ischaemia [Not Recovered/Not Resolved]
  - Oxygen saturation abnormal [Not Recovered/Not Resolved]
  - Renal impairment [Not Recovered/Not Resolved]
  - Hypotension [Not Recovered/Not Resolved]
  - Maternal exposure during pregnancy [Not Recovered/Not Resolved]
  - Exposure during pregnancy [Not Recovered/Not Resolved]
